FAERS Safety Report 5170498-2 (Version None)
Quarter: 2006Q4

REPORT INFORMATION
  Report Type: 
  Country: None (occurrence: None)
  Receive Date: 20061204
  Receipt Date: 20061122
  Transmission Date: 20070319
  Serious: Yes (Other)
  Sender: FDA-Public Use
  Company Number: 2006144245

PATIENT
  Age: 72 Year
  Sex: Female

DRUGS (5)
  1. ZYVOX [Suspect]
     Indication: STAPHYLOCOCCAL INFECTION
     Dosage: 1200 MG, INTRAVENOUS
     Route: 042
     Dates: start: 20061117, end: 20061121
  2. LOXONIN (LOXOPROFEN SODIUM) [Suspect]
     Dosage: ORAL
     Route: 048
  3. ISALON (ALDIOXA) [Suspect]
     Dosage: ORAL
     Route: 048
  4. VOLTAREN [Concomitant]
  5. CHEMOTHERAPY NOS [Concomitant]

REACTIONS (5)
  - ANAEMIA [None]
  - DUODENAL ULCER HAEMORRHAGE [None]
  - GENERAL PHYSICAL HEALTH DETERIORATION [None]
  - IMMUNOSUPPRESSION [None]
  - METASTATIC PAIN [None]
